FAERS Safety Report 22276960 (Version 1)
Quarter: 2023Q2

REPORT INFORMATION
  Report Type: Spontaneous
  Country: RU (occurrence: RU)
  Receive Date: 20230503
  Receipt Date: 20230503
  Transmission Date: 20230722
  Serious: Yes (Hospitalization, Other)
  Sender: FDA-Public Use
  Company Number: None

PATIENT
  Sex: Female

DRUGS (5)
  1. METHYLPREDNISOLONE [Suspect]
     Active Substance: METHYLPREDNISOLONE
     Indication: Immunosuppressant drug therapy
     Dosage: UNK,  UNK
     Dates: start: 201104, end: 20170824
  2. MYCOPHENOLATE MOFETIL [Suspect]
     Active Substance: MYCOPHENOLATE MOFETIL
     Indication: Immunosuppressant drug therapy
     Dosage: UNK,  UNK
     Dates: start: 201104
  3. TACROLIMUS [Suspect]
     Active Substance: TACROLIMUS
     Indication: Immunosuppressant drug therapy
     Dosage: UNK,  UNK
     Dates: start: 201104, end: 20170824
  4. AZATHIOPRINE [Suspect]
     Active Substance: AZATHIOPRINE
     Indication: Immunosuppressant drug therapy
     Dosage: UNK,  UNK
     Dates: start: 2016, end: 201708
  5. PREDNISOLONE [Suspect]
     Active Substance: PREDNISOLONE
     Indication: Glomerulonephritis acute
     Dosage: UNK,  UNK
     Dates: start: 1996

REACTIONS (2)
  - Diffuse large B-cell lymphoma [Recovered/Resolved]
  - Post transplant lymphoproliferative disorder [Recovered/Resolved]

NARRATIVE: CASE EVENT DATE: 20170101
